FAERS Safety Report 8620007-8 (Version None)
Quarter: 2012Q3

REPORT INFORMATION
  Report Type: 
  Country: None (occurrence: None)
  Receive Date: 20120824
  Receipt Date: 20120820
  Transmission Date: 20120928
  Serious: Yes (Other)
  Sender: FDA-Public Use
  Company Number: PHHY2011CA82996

PATIENT
  Sex: Female

DRUGS (6)
  1. GILENYA [Suspect]
     Indication: RELAPSING-REMITTING MULTIPLE SCLEROSIS
     Dosage: 0.5 MG, DAILY
     Route: 048
     Dates: start: 20110706, end: 20111102
  2. MULTI-VITAMINS [Concomitant]
  3. VITAMIN D [Concomitant]
     Dosage: 1000 IU, QD
  4. GILENYA [Suspect]
     Dosage: 0.5 MG, DAILY
     Route: 048
     Dates: start: 20111110
  5. STEROIDS NOS [Suspect]
  6. SYNTHROID [Concomitant]
     Dosage: .375 MG, OT

REACTIONS (7)
  - VISUAL IMPAIRMENT [None]
  - EYE SWELLING [None]
  - FOREIGN BODY SENSATION IN EYES [None]
  - GLAUCOMA [None]
  - EXOPHTHALMOS [None]
  - INTRAOCULAR PRESSURE INCREASED [None]
  - MACULAR OEDEMA [None]
